FAERS Safety Report 9988910 (Version 2)
Quarter: 2014Q1

REPORT INFORMATION
  Report Type: Report from Study
  Country: US (occurrence: US)
  Receive Date: 20140310
  Receipt Date: 20140310
  Transmission Date: 20141002
  Serious: No
  Sender: FDA-Public Use
  Company Number: US-ABBVIE-13P-163-1099341-00

PATIENT
  Age: 38 Year
  Sex: Male

DRUGS (4)
  1. HUMIRA [Suspect]
     Indication: PSORIASIS
     Dates: start: 20130421
  2. LOVASTATIN [Concomitant]
     Indication: BLOOD CHOLESTEROL
  3. LISINOPRIL [Concomitant]
     Indication: BLOOD PRESSURE
  4. HALOBETASOL PROP [Concomitant]
     Indication: PSORIASIS

REACTIONS (8)
  - Secretion discharge [Not Recovered/Not Resolved]
  - Psoriasis [Not Recovered/Not Resolved]
  - Drug ineffective [Not Recovered/Not Resolved]
  - Influenza like illness [Not Recovered/Not Resolved]
  - Hyperhidrosis [Not Recovered/Not Resolved]
  - Diarrhoea [Not Recovered/Not Resolved]
  - Fatigue [Not Recovered/Not Resolved]
  - Skin odour abnormal [Not Recovered/Not Resolved]
